FAERS Safety Report 4772851-5 (Version None)
Quarter: 2005Q3

REPORT INFORMATION
  Report Type: 
  Country: None (occurrence: None)
  Receive Date: 20050916
  Receipt Date: 20050912
  Transmission Date: 20060218
  Serious: Yes (Hospitalization)
  Sender: FDA-Public Use
  Company Number: SEWYE969612SEP05

PATIENT
  Age: 61 Year
  Sex: Male

DRUGS (9)
  1. TAZOCIN (PIPERACILLIN/TAZOBACTAM, INJECTION) [Suspect]
     Indication: SEPSIS
     Dosage: 4 G 3X PER 1 DAY
     Route: 042
     Dates: start: 20050512, end: 20050527
  2. TAZOCIN (PIPERACILLIN/TAZOBACTAM, INJECTION) [Suspect]
     Indication: SEPSIS
     Dosage: 4 G 3X PER 1 DAY
     Route: 042
     Dates: start: 20050609, end: 20050613
  3. BEHEPAN (CYANOCOBALAMIN) [Concomitant]
  4. PRIMPERAN TAB [Concomitant]
  5. LACTULOSE [Concomitant]
  6. OXYCONTIN [Concomitant]
  7. ZOPICLONE (ZOPICLONE) [Concomitant]
  8. LEVAXIN (LEVOTHYROXINE SODIUM) [Concomitant]
  9. OXYCODONE HCL [Concomitant]

REACTIONS (4)
  - BLOOD CULTURE POSITIVE [None]
  - KLEBSIELLA INFECTION [None]
  - RECTAL HAEMORRHAGE [None]
  - THROMBOCYTOPENIA [None]
